FAERS Safety Report 16924011 (Version 1)
Quarter: 2019Q4

REPORT INFORMATION
  Report Type: Spontaneous
  Country: ES (occurrence: ES)
  Receive Date: 20191016
  Receipt Date: 20191016
  Transmission Date: 20200122
  Serious: Yes (Other)
  Sender: FDA-Public Use
  Company Number: NVSC2019ES001321

PATIENT

DRUGS (5)
  1. AZITHROMYCIN DIHYDRATE. [Suspect]
     Active Substance: AZITHROMYCIN DIHYDRATE
     Indication: FOETAL EXPOSURE DURING PREGNANCY
     Dosage: UNK UNK, ONCE/SINGLE
     Route: 064
  2. PROPAMIDINE ISETIONATE [Suspect]
     Active Substance: PROPAMIDINE ISETHIONATE
     Indication: FOETAL EXPOSURE DURING PREGNANCY
     Dosage: UNK UNK, QH
     Route: 064
  3. CHLORHEXIDIN [Suspect]
     Active Substance: CHLORHEXIDINE
     Indication: FOETAL EXPOSURE DURING PREGNANCY
     Dosage: UNK (EVERY TWO HOURS)
     Route: 064
  4. DEXAMETHASONE. [Suspect]
     Active Substance: DEXAMETHASONE
     Indication: FOETAL EXPOSURE DURING PREGNANCY
     Dosage: UNK
     Route: 064
  5. GENTAMICIN. [Suspect]
     Active Substance: GENTAMICIN
     Indication: FOETAL EXPOSURE DURING PREGNANCY
     Dosage: UNK
     Route: 064

REACTIONS (2)
  - Premature baby [Unknown]
  - Foetal exposure during pregnancy [Unknown]
